FAERS Safety Report 11862915 (Version 1)
Quarter: 2015Q4

REPORT INFORMATION
  Report Type: Spontaneous
  Country: IN (occurrence: IN)
  Receive Date: 20151223
  Receipt Date: 20151223
  Transmission Date: 20160305
  Serious: No
  Sender: FDA-Public Use
  Company Number: IN-LUPIN PHARMACEUTICALS INC.-E2B_00004444

PATIENT
  Age: 22 Year
  Sex: Male

DRUGS (3)
  1. MARCOZYME [Concomitant]
     Indication: PRODUCT USED FOR UNKNOWN INDICATION
     Route: 048
     Dates: start: 20151026, end: 20151029
  2. ACILOC [Concomitant]
     Indication: FLATULENCE
     Route: 048
     Dates: start: 20151026, end: 20151029
  3. CIPROFLOXACIN (CIPROVA LU.) [Suspect]
     Active Substance: CIPROFLOXACIN
     Indication: ABDOMINAL PAIN
     Route: 048
     Dates: start: 20151026, end: 20151029

REACTIONS (1)
  - Rash generalised [Not Recovered/Not Resolved]

NARRATIVE: CASE EVENT DATE: 20151029
